FAERS Safety Report 9071137 (Version 1)
Quarter: 2013Q1

REPORT INFORMATION
  Report Type: Report from Study
  Country: US (occurrence: US)
  Receive Date: 20130129
  Receipt Date: 20130129
  Transmission Date: 20140127
  Serious: No
  Sender: FDA-Public Use
  Company Number: US-ABBOTT-12P-163-0930415-00

PATIENT
  Age: 49 Year
  Sex: Female

DRUGS (7)
  1. HUMIRA 40 MG/0.8 ML PEN [Suspect]
     Indication: PSORIASIS
     Dosage: LOADING DOSE
     Dates: start: 20120415
  2. PREDNISONE [Concomitant]
     Indication: PRURITUS
     Dosage: DAILY
     Route: 048
  3. HYDROXYZINE [Concomitant]
     Indication: PRURITUS
     Route: 048
  4. METFORMIN [Concomitant]
     Indication: DIABETES MELLITUS
     Dosage: 500MG X 2 TABLETS DAILY
  5. HYDROCORTISONE [Concomitant]
     Indication: PRURITUS
     Route: 061
  6. HYDROCODONE [Concomitant]
     Indication: PAIN
     Route: 048
  7. OMEPRAZOLE [Concomitant]
     Indication: GASTRIC DISORDER
     Dosage: DAILY
     Route: 048

REACTIONS (1)
  - Pruritus [Not Recovered/Not Resolved]
